FAERS Safety Report 4396605-7 (Version None)
Quarter: 2004Q3

REPORT INFORMATION
  Report Type: 
  Country: None (occurrence: None)
  Receive Date: 20040713
  Receipt Date: 20040713
  Transmission Date: 20050211
  Serious: Yes (Life-Threatening, Hospitalization)
  Sender: FDA-Public Use
  Company Number: None

PATIENT
  Age: 56 Year
  Sex: Male
  Weight: 79.5 kg

DRUGS (1)
  1. RAMIPRIL [Suspect]
     Dosage: 1.25MG QD ORAL
     Route: 048
     Dates: start: 20040611, end: 20040623

REACTIONS (2)
  - CHEST DISCOMFORT [None]
  - DYSPNOEA [None]
